FAERS Safety Report 5201184-8 (Version None)
Quarter: 2007Q1

REPORT INFORMATION
  Report Type: 
  Country: None (occurrence: None)
  Receive Date: 20070103
  Receipt Date: 20061225
  Transmission Date: 20070707
  Serious: Yes (Hospitalization)
  Sender: FDA-Public Use
  Company Number: E2090-00159-SPO-JP

PATIENT
  Age: 73 Year
  Sex: Female

DRUGS (8)
  1. EXCEGRAN (ZONISAMIDE) [Suspect]
     Indication: EPILEPSY
     Dosage: 300 MG, ORAL
     Route: 048
     Dates: start: 20060901, end: 20061026
  2. AMLODIPINE BESYLATE [Concomitant]
  3. FAMOTIDINE [Concomitant]
  4. ISOFLURANE [Concomitant]
  5. FENTANYL CITRATE [Concomitant]
  6. LAUGHING GAS (NITROUS OXIDE) [Concomitant]
  7. PROPOFOL [Concomitant]
  8. VECURONIUM BROMIDE [Concomitant]

REACTIONS (14)
  - ABDOMINAL PAIN UPPER [None]
  - ANOREXIA [None]
  - BLOOD PRESSURE DECREASED [None]
  - CONJUNCTIVITIS [None]
  - DIARRHOEA [None]
  - DIZZINESS [None]
  - DRUG HYPERSENSITIVITY [None]
  - ECZEMA [None]
  - GASTROINTESTINAL DISORDER [None]
  - OEDEMA PERIPHERAL [None]
  - OLIGURIA [None]
  - PALPITATIONS [None]
  - PYREXIA [None]
  - VOMITING [None]
